FAERS Safety Report 20363055 (Version 3)
Quarter: 2022Q3

REPORT INFORMATION
  Report Type: Spontaneous
  Country: MX (occurrence: MX)
  Receive Date: 20220121
  Receipt Date: 20220920
  Transmission Date: 20221027
  Serious: Yes (Other)
  Sender: FDA-Public Use
  Company Number: MX-NOVARTISPH-NVSC2022MX012148

PATIENT
  Age: 74 Year
  Sex: Female
  Weight: 70 kg

DRUGS (10)
  1. HYDROCHLOROTHIAZIDE\VALSARTAN [Suspect]
     Active Substance: HYDROCHLOROTHIAZIDE\VALSARTAN
     Indication: Hypertension
     Dosage: 1 DOSAGE FORM, QD (160/12.5 MG) IN THE MORNING, EVERY 24 HOURS (STARTED 15 YEARS AGO APPROXIMATELY)
     Route: 048
     Dates: start: 2007, end: 2017
  2. HYDROCHLOROTHIAZIDE\VALSARTAN [Suspect]
     Active Substance: HYDROCHLOROTHIAZIDE\VALSARTAN
     Dosage: 1 DOSAGE FORM, QD (160 / 12.5 MG)
     Route: 048
     Dates: start: 2017, end: 2017
  3. HYDROCHLOROTHIAZIDE\VALSARTAN [Suspect]
     Active Substance: HYDROCHLOROTHIAZIDE\VALSARTAN
     Dosage: 1 DOSAGE FORM, QD (160 / 12.5 MG)
     Route: 048
     Dates: start: 2017
  4. METFORMIN HYDROCHLORIDE\VILDAGLIPTIN [Suspect]
     Active Substance: METFORMIN HYDROCHLORIDE\VILDAGLIPTIN
     Indication: Diabetes mellitus
     Dosage: 1 DOSAGE FORM (50/850 MG) QD IN THE MORNING
     Route: 048
     Dates: start: 2019, end: 20220828
  5. METFORMIN HYDROCHLORIDE\VILDAGLIPTIN [Suspect]
     Active Substance: METFORMIN HYDROCHLORIDE\VILDAGLIPTIN
     Dosage: 1 DOSAGE FORM, (50/850MG) QD
     Route: 048
     Dates: start: 202205
  6. METFORMIN HYDROCHLORIDE\VILDAGLIPTIN [Suspect]
     Active Substance: METFORMIN HYDROCHLORIDE\VILDAGLIPTIN
     Dosage: 1 DOSAGE FORM, (50 MG) QD
     Route: 048
     Dates: start: 202208
  7. CRESTOR [Concomitant]
     Active Substance: ROSUVASTATIN CALCIUM
     Indication: Product used for unknown indication
     Dosage: 20 OT
     Route: 065
  8. ASPIRIN [Concomitant]
     Active Substance: ASPIRIN
     Indication: Product used for unknown indication
     Dosage: 100 MG, QD (10 YEARS AGO)
     Route: 048
     Dates: end: 202111
  9. ALPRAZOLAM [Concomitant]
     Active Substance: ALPRAZOLAM
     Indication: Product used for unknown indication
     Dosage: 2 MG (10 YEARS AGO)
     Route: 065
     Dates: end: 202111
  10. ALLOPURINOL [Concomitant]
     Active Substance: ALLOPURINOL
     Indication: Product used for unknown indication
     Dosage: 0.5 DOSAGE FORM (? OF 300 MGS EVERY THIRD DAY)
     Route: 048
     Dates: start: 201911, end: 202111

REACTIONS (8)
  - Cholelithiasis [Recovered/Resolved]
  - Weight decreased [Not Recovered/Not Resolved]
  - Diverticulum intestinal [Unknown]
  - Nervousness [Not Recovered/Not Resolved]
  - Anxiety [Not Recovered/Not Resolved]
  - Diarrhoea [Recovered/Resolved]
  - Muscle spasms [Not Recovered/Not Resolved]
  - Oedema peripheral [Unknown]

NARRATIVE: CASE EVENT DATE: 20191014
